FAERS Safety Report 6934039-9 (Version None)
Quarter: 2010Q3

REPORT INFORMATION
  Report Type: 
  Country: None (occurrence: None)
  Receive Date: 20100820
  Receipt Date: 20100818
  Transmission Date: 20110219
  Serious: Yes (Hospitalization)
  Sender: FDA-Public Use
  Company Number: US-JNJFOC-20100607463

PATIENT
  Sex: Female
  Weight: 16.78 kg

DRUGS (3)
  1. CHILDRENS TYLENOL [Suspect]
     Route: 048
  2. CHILDRENS TYLENOL [Suspect]
     Indication: PYREXIA
     Route: 048
  3. CHILDREN'S ZYRTEC ALLERGY [Suspect]
     Indication: SEASONAL ALLERGY
     Route: 048

REACTIONS (7)
  - FATIGUE [None]
  - LETHARGY [None]
  - LOSS OF CONSCIOUSNESS [None]
  - PRODUCT QUALITY ISSUE [None]
  - PYREXIA [None]
  - UNRESPONSIVE TO STIMULI [None]
  - VOMITING [None]
